FAERS Safety Report 13127661 (Version 1)
Quarter: 2017Q1

REPORT INFORMATION
  Report Type: Spontaneous
  Country: US (occurrence: US)
  Receive Date: 20170118
  Receipt Date: 20170118
  Transmission Date: 20170428
  Serious: Yes (Other)
  Sender: FDA-Public Use
  Company Number: US-TEVA-729909USA

PATIENT
  Sex: Female

DRUGS (3)
  1. METFORMIN [Suspect]
     Active Substance: METFORMIN HYDROCHLORIDE
     Route: 065
  2. HUMALOG [Concomitant]
     Active Substance: INSULIN LISPRO
  3. PREDNISONE. [Suspect]
     Active Substance: PREDNISONE

REACTIONS (4)
  - Hyperglycaemia [Unknown]
  - Asthma [Unknown]
  - Pneumonia [Unknown]
  - Blood glucose abnormal [Unknown]
